FAERS Safety Report 9405943 (Version 1)
Quarter: 2013Q3

REPORT INFORMATION
  Report Type: Spontaneous
  Country: FR (occurrence: FR)
  Receive Date: 20130717
  Receipt Date: 20130717
  Transmission Date: 20140515
  Serious: Yes (Hospitalization)
  Sender: FDA-Public Use
  Company Number: FR-GLAXOSMITHKLINE-B0906415A

PATIENT
  Age: 37 Year
  Sex: Male

DRUGS (2)
  1. MALARONE [Suspect]
     Indication: MALARIA
     Dosage: 4TAB PER DAY
     Route: 048
     Dates: start: 20130603, end: 20130605
  2. ARTESUNATE [Suspect]
     Indication: MALARIA
     Dosage: 60MG UNKNOWN
     Route: 042
     Dates: start: 20130529, end: 20130602

REACTIONS (1)
  - Haemolytic anaemia [Recovering/Resolving]
